FAERS Safety Report 7373722-0 (Version None)
Quarter: 2011Q1

REPORT INFORMATION
  Report Type: 
  Country: None (occurrence: None)
  Receive Date: 20110325
  Receipt Date: 20101005
  Transmission Date: 20110831
  Serious: No
  Sender: FDA-Public Use
  Company Number: US-MYLANLABS-2010S1018520

PATIENT
  Age: 68 Year
  Sex: Female

DRUGS (6)
  1. PROPRANOLOL HYDROCHLORIDE [Suspect]
     Indication: HEART RATE IRREGULAR
     Route: 048
     Dates: start: 20100901, end: 20101001
  2. INSULIN [Concomitant]
  3. NORVASC [Concomitant]
  4. PROPRANOLOL HYDROCHLORIDE [Suspect]
     Indication: BLOOD PRESSURE INCREASED
     Route: 048
     Dates: start: 20100901, end: 20101001
  5. ASPIRIN [Concomitant]
  6. PLAVIX [Concomitant]

REACTIONS (6)
  - HEART RATE IRREGULAR [None]
  - DRUG INEFFECTIVE [None]
  - ANXIETY [None]
  - INSOMNIA [None]
  - DYSPNOEA [None]
  - RESTLESSNESS [None]
